FAERS Safety Report 17084019 (Version 4)
Quarter: 2021Q1

REPORT INFORMATION
  Report Type: Report from Study
  Country: US (occurrence: US)
  Receive Date: 20191127
  Receipt Date: 20210317
  Transmission Date: 20210419
  Serious: Yes (Other)
  Sender: FDA-Public Use
  Company Number: NVSC2019US027500

PATIENT
  Sex: Male

DRUGS (2)
  1. WARFARIN [Concomitant]
     Active Substance: WARFARIN
     Indication: PRODUCT USED FOR UNKNOWN INDICATION
     Dosage: UNK
     Route: 065
  2. ENTRESTO [Suspect]
     Active Substance: SACUBITRIL\VALSARTAN
     Indication: PRODUCT USED FOR UNKNOWN INDICATION
     Dosage: 50 MG (SACUBITRIL 24 MG/VALSARTAN 26 MG), BID
     Route: 048
     Dates: start: 2017

REACTIONS (12)
  - Cough [Unknown]
  - Weight decreased [Unknown]
  - Neuralgia [Unknown]
  - Illness [Unknown]
  - Dizziness postural [Unknown]
  - Hypotension [Unknown]
  - Muscular weakness [Unknown]
  - Blood glucose decreased [Unknown]
  - Fall [Unknown]
  - Ankle fracture [Unknown]
  - Pneumonia [Unknown]
  - Balance disorder [Unknown]
